FAERS Safety Report 21520542 (Version 1)
Quarter: 2022Q4

REPORT INFORMATION
  Report Type: Spontaneous
  Country: DE (occurrence: DE)
  Receive Date: 20221028
  Receipt Date: 20221028
  Transmission Date: 20230113
  Serious: Yes (Hospitalization)
  Sender: FDA-Public Use
  Company Number: DE-JNJFOC-20221042764

PATIENT
  Age: 10 Year
  Sex: Female

DRUGS (2)
  1. VERMOX [Suspect]
     Active Substance: MEBENDAZOLE
     Indication: Enterobiasis
     Route: 048
  2. IBUPROFEN [Suspect]
     Active Substance: IBUPROFEN
     Indication: Headache
     Route: 065

REACTIONS (4)
  - Anaphylactic shock [Not Recovered/Not Resolved]
  - Cross sensitivity reaction [Unknown]
  - Urticaria [Not Recovered/Not Resolved]
  - Drug hypersensitivity [Unknown]
